FAERS Safety Report 9722988 (Version 2)
Quarter: 2013Q4

REPORT INFORMATION
  Report Type: Spontaneous
  Country: GB (occurrence: GB)
  Receive Date: 20131202
  Receipt Date: 20131202
  Transmission Date: 20140711
  Serious: Yes (Other)
  Sender: FDA-Public Use
  Company Number: GB-PFIZER INC-2013177586

PATIENT
  Age: 71 Year
  Sex: Female

DRUGS (8)
  1. XALATAN [Suspect]
     Indication: GLAUCOMA
     Dosage: 1 DF, 1X/DAY
     Route: 047
  2. COSOPT [Suspect]
     Indication: GLAUCOMA
     Dosage: 1 DF, 2X/DAY
     Route: 047
  3. TIMOLOL [Suspect]
     Indication: GLAUCOMA
     Route: 047
  4. AZOPT [Suspect]
     Indication: GLAUCOMA
     Route: 047
  5. TRUSOPT [Suspect]
     Indication: GLAUCOMA
  6. ALPHAGAN [Suspect]
     Indication: GLAUCOMA
  7. AZARGA [Suspect]
     Indication: GLAUCOMA
     Dosage: UNK
     Route: 047
  8. AMITRIPTYLINE [Concomitant]
     Dosage: 10 MG, 1X/DAY AT NIGHT

REACTIONS (5)
  - Hypersensitivity [Unknown]
  - Glaucoma [Unknown]
  - Eye disorder [Recovered/Resolved]
  - Drug ineffective [Unknown]
  - Intraocular pressure test [Unknown]
